FAERS Safety Report 14033393 (Version 1)
Quarter: 2017Q4

REPORT INFORMATION
  Report Type: Spontaneous
  Country: US (occurrence: US)
  Receive Date: 20171002
  Receipt Date: 20171002
  Transmission Date: 20180321
  Serious: Yes (Other)
  Sender: FDA-Public Use
  Company Number: None

PATIENT
  Sex: Female
  Weight: 69.75 kg

DRUGS (25)
  1. ASPIRIN. [Concomitant]
     Active Substance: ASPIRIN
  2. CANDESARTAN CILEXETIL. [Concomitant]
     Active Substance: CANDESARTAN CILEXETIL
  3. LECITHIN [Concomitant]
     Active Substance: LECITHIN
  4. FERROUS GLUCONATE [Concomitant]
     Active Substance: FERROUS GLUCONATE
  5. CLARINEX-D [Concomitant]
     Active Substance: DESLORATADINE\PSEUDOEPHEDRINE SULFATE
  6. MYRBETRIQ [Concomitant]
     Active Substance: MIRABEGRON
  7. BIOFREEZE [Concomitant]
     Active Substance: MENTHOL
  8. SUCRALAFATE [Concomitant]
  9. CYMBALTA [Concomitant]
     Active Substance: DULOXETINE HYDROCHLORIDE
  10. MAGNESIUM CITRATE. [Concomitant]
     Active Substance: MAGNESIUM CITRATE
  11. FOLIC ACID. [Concomitant]
     Active Substance: FOLIC ACID
  12. VOLTAREN [Concomitant]
     Active Substance: DICLOFENAC SODIUM
  13. TIMOLOL MALEATE. [Concomitant]
     Active Substance: TIMOLOL MALEATE
  14. XALATAN [Concomitant]
     Active Substance: LATANOPROST
  15. FLUCONAZOLE. [Concomitant]
     Active Substance: FLUCONAZOLE
  16. PERCOCET [Concomitant]
     Active Substance: ACETAMINOPHEN\OXYCODONE HYDROCHLORIDE
  17. CIPROFLOXACIN. [Concomitant]
     Active Substance: CIPROFLOXACIN
  18. MODAFINIL. [Concomitant]
     Active Substance: MODAFINIL
  19. CULTURELLE HEALTH + WELLNESS [Concomitant]
  20. LYRICA [Concomitant]
     Active Substance: PREGABALIN
  21. VALACYCLOVIR [Concomitant]
     Active Substance: VALACYCLOVIR HYDROCHLORIDE
  22. PRAVASTATIN. [Concomitant]
     Active Substance: PRAVASTATIN
  23. IBRANCE [Suspect]
     Active Substance: PALBOCICLIB
     Indication: BREAST CANCER
     Route: 048
     Dates: start: 20170401
  24. LIDOCAINE. [Concomitant]
     Active Substance: LIDOCAINE
  25. FIORICET/CODEINE [Concomitant]

REACTIONS (1)
  - Vomiting [None]
